FAERS Safety Report 5381633-5 (Version None)
Quarter: 2007Q3

REPORT INFORMATION
  Report Type: 
  Country: None (occurrence: None)
  Receive Date: 20070709
  Receipt Date: 20070627
  Transmission Date: 20080115
  Serious: Yes (Other)
  Sender: FDA-Public Use
  Company Number: PHBS2007NL10867

PATIENT
  Age: 59 Year
  Sex: Male

DRUGS (3)
  1. GLEEVEC [Suspect]
     Indication: CHRONIC MYELOID LEUKAEMIA
     Dosage: 300 MG/D
     Route: 048
  2. GLEEVEC [Suspect]
     Dosage: 400 MG/D
     Route: 048
  3. GLEEVEC [Suspect]
     Dosage: 400 MG, QD
     Route: 048
     Dates: start: 20050101

REACTIONS (8)
  - APHONIA [None]
  - DYSPHONIA [None]
  - FLATULENCE [None]
  - MALAISE [None]
  - ODYNOPHAGIA [None]
  - PERIORBITAL OEDEMA [None]
  - PHARYNGOLARYNGEAL PAIN [None]
  - VOCAL CORD PARALYSIS [None]
